FAERS Safety Report 19283791 (Version 2)
Quarter: 2021Q3

REPORT INFORMATION
  Report Type: Spontaneous
  Country: US (occurrence: US)
  Receive Date: 20210521
  Receipt Date: 20210806
  Transmission Date: 20211014
  Serious: No
  Sender: FDA-Public Use
  Company Number: US-ALNYLAM PHARMACEUTICALS, INC.-ALN-2021-001119

PATIENT

DRUGS (2)
  1. GIVLAARI [Suspect]
     Active Substance: GIVOSIRAN SODIUM
     Indication: PORPHYRIA
     Dosage: UNK
     Route: 058
     Dates: start: 202001
  2. PANHEMATIN [Suspect]
     Active Substance: HEMIN
     Indication: PRODUCT USED FOR UNKNOWN INDICATION

REACTIONS (5)
  - Memory impairment [Unknown]
  - Iron overload [Unknown]
  - Pre-existing condition improved [Unknown]
  - Porphyria acute [Unknown]
  - Emotional distress [Unknown]
